FAERS Safety Report 5642660-3 (Version None)
Quarter: 2008Q1

REPORT INFORMATION
  Report Type: 
  Country: None (occurrence: None)
  Receive Date: 20080227
  Receipt Date: 20080227
  Transmission Date: 20080703
  Serious: Yes (Hospitalization)
  Sender: FDA-Public Use
  Company Number: None

PATIENT
  Sex: Female

DRUGS (23)
  1. DARVON [Suspect]
     Indication: DETOXIFICATION
     Dosage: Q6H PRN
     Dates: start: 20070621
  2. LIBRIUM [Suspect]
     Indication: DETOXIFICATION
     Dosage: Q4H PRN
     Dates: start: 20070621
  3. M.V.I. [Concomitant]
  4. ASPIRIN [Concomitant]
  5. THIAMINE [Concomitant]
  6. FOLIC ACID [Concomitant]
  7. DITROPAN [Concomitant]
  8. TRIZIVIR [Concomitant]
  9. NEXIUM [Concomitant]
  10. VIREAD [Concomitant]
  11. TYLENOL (CAPLET) [Concomitant]
  12. TUSSEX [Concomitant]
  13. MYLANTA [Concomitant]
  14. BENTYL [Concomitant]
  15. ALBUTEROL [Concomitant]
  16. MOTRIN [Concomitant]
  17. CATAPRES [Concomitant]
  18. LANTUS [Concomitant]
  19. TRAZODONE HCL [Concomitant]
  20. PAXIL [Concomitant]
  21. NORVASC [Concomitant]
  22. LISINOPRIL [Concomitant]
  23. ZYPREXA [Concomitant]

REACTIONS (3)
  - FALL [None]
  - HEAD INJURY [None]
  - UNRESPONSIVE TO STIMULI [None]
